FAERS Safety Report 9022495 (Version 2)
Quarter: 2013Q1

REPORT INFORMATION
  Report Type: Report from Study
  Country: DE (occurrence: DE)
  Receive Date: 20130118
  Receipt Date: 20130128
  Transmission Date: 20140127
  Serious: Yes (Hospitalization, Other)
  Sender: FDA-Public Use
  Company Number: DE-TEVA-379381GER

PATIENT
  Sex: Female

DRUGS (28)
  1. DOXORUBICIN [Suspect]
     Indication: B-CELL LYMPHOMA
     Route: 042
     Dates: start: 20121120, end: 20121120
  2. DOXORUBICIN [Suspect]
     Dosage: 84 MILLIGRAM DAILY;
     Route: 042
     Dates: start: 20121204, end: 20121204
  3. DOXORUBICIN [Suspect]
     Dosage: 78 MILLIGRAM DAILY;
     Route: 042
     Dates: start: 20121221
  4. PREDNISONE [Suspect]
     Indication: B-CELL LYMPHOMA
     Dosage: 100 MILLIGRAM DAILY;
     Route: 048
     Dates: start: 20121107, end: 20121114
  5. PREDNISONE [Suspect]
     Dosage: 100 MILLIGRAM DAILY;
     Route: 048
     Dates: start: 20121204, end: 20121208
  6. PREDNISONE [Suspect]
     Dosage: 100 MILLIGRAM DAILY;
     Route: 048
     Dates: start: 20121221
  7. RITUXIMAB [Suspect]
     Indication: B-CELL LYMPHOMA
     Route: 042
     Dates: start: 20121109, end: 20121123
  8. RITUXIMAB [Suspect]
     Route: 042
     Dates: start: 20121203, end: 20121203
  9. RITUXIMAB [Suspect]
     Dosage: 580 MILLIGRAM DAILY;
     Route: 042
     Dates: start: 20121220
  10. CYCLOPHOSPHAMID [Suspect]
     Indication: B-CELL LYMPHOMA
     Route: 042
     Dates: start: 20121120, end: 20121120
  11. CYCLOPHOSPHAMID [Suspect]
     Route: 042
     Dates: start: 20121204, end: 20121204
  12. CYCLOPHOSPHAMID [Suspect]
     Dosage: 1100 MILLIGRAM DAILY;
     Route: 042
     Dates: start: 20121221
  13. PEGFILGRASTIM [Suspect]
     Indication: B-CELL LYMPHOMA
     Route: 058
     Dates: start: 20121123, end: 20121123
  14. PEGFILGRASTIM [Suspect]
     Route: 058
     Dates: start: 20121207, end: 20121207
  15. PEGFILGRASTIM [Suspect]
     Dosage: 6 MILLIGRAM DAILY;
     Route: 058
     Dates: start: 20121224
  16. VINCRISTINE [Suspect]
     Indication: B-CELL LYMPHOMA
     Dosage: 3.34 MILLIGRAM DAILY;
     Route: 042
     Dates: start: 20121120, end: 20121120
  17. VINCRISTINE [Suspect]
     Dosage: 3.34 MILLIGRAM DAILY;
     Route: 042
     Dates: start: 20121206, end: 20121206
  18. VINCRISTINE [Suspect]
     Dosage: 3.08 MILLIGRAM DAILY;
     Route: 042
     Dates: start: 20121221
  19. ALLOPURINOL [Concomitant]
     Indication: HYPERURICAEMIA
     Route: 048
  20. RAMIPRIL [Concomitant]
     Indication: HYPERTENSION
     Route: 048
  21. AMLODIPINE [Concomitant]
     Indication: HYPERTENSION
     Dosage: 5 MILLIGRAM DAILY;
     Route: 048
     Dates: start: 2010
  22. CEFIXIME [Concomitant]
     Indication: INFECTION
     Dosage: 400 MILLIGRAM DAILY;
     Route: 048
     Dates: start: 20121123
  23. METAMIZOLE SODIUM [Concomitant]
     Indication: PAIN
     Dosage: 160 GTT DAILY; 160 GTT DAILY, 42 G (10.5 G 4X1 DAILY)
     Route: 048
     Dates: start: 20121101
  24. PANTOPRAZOLE [Concomitant]
     Indication: DYSPEPSIA
     Route: 048
  25. METOCLOPRAMIDE [Concomitant]
     Indication: NAUSEA
     Route: 048
  26. ONDANSETRON [Concomitant]
     Indication: NAUSEA
     Dosage: 16 MILLIGRAM DAILY;
     Route: 048
  27. LACTULOSE [Concomitant]
     Indication: CONSTIPATION
     Dosage: 20 ML DAILY;
     Route: 048
  28. PANTOPRAZOL NATRIUM [Concomitant]
     Indication: DYSPEPSIA
     Dosage: 40 MILLIGRAM DAILY;
     Route: 048

REACTIONS (5)
  - Cholestasis [Recovered/Resolved]
  - Abdominal pain [Unknown]
  - Fatigue [Recovered/Resolved]
  - Mucosal inflammation [Unknown]
  - Neutropenia [Unknown]
